FAERS Safety Report 23304132 (Version 1)
Quarter: 2023Q4

REPORT INFORMATION
  Report Type: Spontaneous
  Country: US (occurrence: US)
  Receive Date: 20231218
  Receipt Date: 20231218
  Transmission Date: 20240109
  Serious: No
  Sender: FDA-Public Use
  Company Number: US-002147023-NVSC2023US266599

PATIENT
  Age: 68 Year
  Sex: Male

DRUGS (1)
  1. LEQVIO [Suspect]
     Active Substance: INCLISIRAN SODIUM
     Indication: Lipids decreased
     Dosage: 284 MG, OTHER (DAY ZERO, DAY 90, EVERY 6 MONTHS THEREAFTER)
     Route: 003
     Dates: start: 20230314, end: 20230606

REACTIONS (4)
  - Neck pain [Recovering/Resolving]
  - Myalgia [Recovering/Resolving]
  - Arthralgia [Recovering/Resolving]
  - Low density lipoprotein [Recovering/Resolving]

NARRATIVE: CASE EVENT DATE: 20230613
